FAERS Safety Report 14219715 (Version 1)
Quarter: 2017Q4

REPORT INFORMATION
  Report Type: Other
  Country: US (occurrence: US)
  Receive Date: 20171123
  Receipt Date: 20171123
  Transmission Date: 20180321
  Serious: Yes (Death, Hospitalization, Other)
  Sender: FDA-Public Use
  Company Number: US-VELOXIS PHARMACEUTICALS-2034973

PATIENT
  Age: 71 Year
  Sex: Male

DRUGS (9)
  1. METHYLPREDNISOLONE. [Concomitant]
     Active Substance: METHYLPREDNISOLONE
  2. MICAFUNGIN [Concomitant]
     Active Substance: MICAFUNGIN
  3. TOBRAMYCIN. [Concomitant]
     Active Substance: TOBRAMYCIN
     Route: 045
  4. CYTOMEGALOVIRUS IMMUNE GLOBULIN INTRAVENOUS (HUMAN). [Concomitant]
     Active Substance: CYTOMEGALOVIRUS IMMUNE GLOBULIN INTRAVENOUS (HUMAN)
  5. ENVARSUS XR [Suspect]
     Active Substance: TACROLIMUS
     Indication: LUNG TRANSPLANT
  6. CEFEPIME HYDROCHLORIDE. [Concomitant]
     Active Substance: CEFEPIME HYDROCHLORIDE
  7. VANCOMYCIN HYDROCHLORIDE. [Concomitant]
     Active Substance: VANCOMYCIN HYDROCHLORIDE
  8. AMPHOTERICIN B LIPID COMPLEX [Concomitant]
     Active Substance: AMPHOTERICIN B
     Route: 045
  9. MYCOPHENOLATE MOFETIL. [Concomitant]
     Active Substance: MYCOPHENOLATE MOFETIL

REACTIONS (7)
  - Respiratory arrest [Unknown]
  - Ventricular tachycardia [Unknown]
  - Intentional product use issue [Unknown]
  - Candida infection [Unknown]
  - Pneumothorax [Unknown]
  - Hypotension [Unknown]
  - Circulatory collapse [Fatal]
